FAERS Safety Report 10298773 (Version 3)
Quarter: 2014Q4

REPORT INFORMATION
  Report Type: Spontaneous
  Country: US (occurrence: US)
  Receive Date: 20140711
  Receipt Date: 20141113
  Transmission Date: 20150528
  Serious: Yes (Hospitalization, Disabling)
  Sender: FDA-Public Use
  Company Number: US-BAYER-2014-101322

PATIENT
  Age: 27 Year
  Sex: Female
  Weight: 73 kg

DRUGS (28)
  1. ASPIRIN. [Concomitant]
     Active Substance: ASPIRIN
     Indication: THROMBOSIS PROPHYLAXIS
  2. VANCOMYCIN [Concomitant]
     Active Substance: VANCOMYCIN
  3. PHENOBARB [Concomitant]
     Active Substance: PHENOBARBITAL SODIUM
  4. FERROUS SULFATE [Concomitant]
     Active Substance: FERROUS SULFATE\FERROUS SULFATE, DRIED
  5. LIDOCAINE. [Concomitant]
     Active Substance: LIDOCAINE
     Dosage: 2 %, UNK
  6. INSULIN [Concomitant]
     Active Substance: INSULIN NOS
  7. CHLORHEXIDINE [Concomitant]
     Active Substance: CHLORHEXIDINE
  8. PENTOBARBITAL SODIUM [PENTOBARBITAL] [Concomitant]
  9. CIPRO [Concomitant]
     Active Substance: CIPROFLOXACIN HYDROCHLORIDE
     Indication: CONJUNCTIVITIS
  10. ASCORBIC ACID. [Concomitant]
     Active Substance: ASCORBIC ACID
  11. PROPRANOLOL [Concomitant]
     Active Substance: PROPRANOLOL\PROPRANOLOL HYDROCHLORIDE
  12. LEVETIRACETAM. [Concomitant]
     Active Substance: LEVETIRACETAM
  13. MIDAZOLAM [Concomitant]
     Active Substance: MIDAZOLAM\MIDAZOLAM HYDROCHLORIDE
  14. MANNITOL. [Concomitant]
     Active Substance: MANNITOL
  15. DOCUSATE [Concomitant]
     Active Substance: DOCUSATE
  16. PHENYTOIN. [Concomitant]
     Active Substance: PHENYTOIN
  17. YAZ [Suspect]
     Active Substance: DROSPIRENONE\ETHINYL ESTRADIOL
     Indication: CONTRACEPTION
     Dosage: UNK
     Dates: start: 2007, end: 2012
  18. INDERAL [Concomitant]
     Active Substance: PROPRANOLOL HYDROCHLORIDE
  19. LASIX [Concomitant]
     Active Substance: FUROSEMIDE
  20. PANTOPRAZOLE [Concomitant]
     Active Substance: PANTOPRAZOLE SODIUM
  21. OCELLA [Suspect]
     Active Substance: DROSPIRENONE\ETHINYL ESTRADIOL
     Indication: CONTRACEPTION
     Dosage: UNK
     Dates: start: 2007, end: 2012
  22. MORPHINE [Concomitant]
     Active Substance: MORPHINE
  23. KEPPRA [Concomitant]
     Active Substance: LEVETIRACETAM
  24. PSYLLIUM [Concomitant]
     Active Substance: PLANTAGO SEED
  25. ATIVAN [Concomitant]
     Active Substance: LORAZEPAM
  26. OXACILLIN [Concomitant]
     Active Substance: OXACILLIN SODIUM
  27. CEFEPIME [Concomitant]
     Active Substance: CEFEPIME\CEFEPIME HYDROCHLORIDE
  28. AMITRIPTYLINE [Concomitant]
     Active Substance: AMITRIPTYLINE

REACTIONS (24)
  - Blood test abnormal [None]
  - Injury [Recovered/Resolved]
  - Cognitive disorder [None]
  - Emotional distress [None]
  - Neurogenic shock [Recovered/Resolved]
  - Loss of proprioception [None]
  - Pain in extremity [None]
  - Seizure [None]
  - Neuralgia [Recovered/Resolved]
  - Anhedonia [None]
  - Haemorrhage intracranial [None]
  - Nervous system disorder [Recovered/Resolved]
  - Medical induction of coma [None]
  - Pain [Recovered/Resolved]
  - Activities of daily living impaired [None]
  - Superior sagittal sinus thrombosis [Recovered/Resolved]
  - Headache [Recovered/Resolved]
  - Mental disorder [None]
  - Cerebrovascular accident [None]
  - Impaired work ability [None]
  - Asthenia [None]
  - Sensory loss [None]
  - Coordination abnormal [None]
  - Balance disorder [None]

NARRATIVE: CASE EVENT DATE: 201208
